FAERS Safety Report 14340927 (Version 2)
Quarter: 2018Q1

REPORT INFORMATION
  Report Type: Spontaneous
  Country: JP (occurrence: JP)
  Receive Date: 20180102
  Receipt Date: 20180124
  Transmission Date: 20180509
  Serious: Yes (Other)
  Sender: FDA-Public Use
  Company Number: JP-ROCHE-2047434

PATIENT
  Age: 61 Year
  Sex: Male
  Weight: 92 kg

DRUGS (5)
  1. ULTIVA [Suspect]
     Active Substance: REMIFENTANIL HYDROCHLORIDE
     Indication: PRODUCT USED FOR UNKNOWN INDICATION
     Route: 065
     Dates: start: 20171218, end: 20171218
  2. XARELTO [Concomitant]
     Active Substance: RIVAROXABAN
     Route: 048
     Dates: start: 201712, end: 20171217
  3. TAMIFLU [Suspect]
     Active Substance: OSELTAMIVIR PHOSPHATE
     Indication: ANTIVIRAL PROPHYLAXIS
     Route: 048
     Dates: start: 20171216, end: 20171218
  4. CAMSHIA [Concomitant]
     Active Substance: AMLODIPINE BESYLATE\CANDESARTAN CILEXETIL
     Route: 048
     Dates: start: 201712, end: 20171218
  5. FENTANYL CITRATE. [Suspect]
     Active Substance: FENTANYL CITRATE
     Indication: PRODUCT USED FOR UNKNOWN INDICATION
     Route: 065
     Dates: start: 20171218, end: 20171218

REACTIONS (11)
  - Muscle spasms [Recovering/Resolving]
  - Restlessness [Unknown]
  - Mouth breathing [Unknown]
  - Dyskinesia [Recovering/Resolving]
  - Depressed level of consciousness [Unknown]
  - Renal impairment [Unknown]
  - Blood pressure measurement [Unknown]
  - Hyperthermia malignant [Unknown]
  - Blood creatine phosphokinase increased [Unknown]
  - Tachycardia [Unknown]
  - Hepatic function abnormal [Unknown]

NARRATIVE: CASE EVENT DATE: 20171218
